FAERS Safety Report 5179530-3 (Version None)
Quarter: 2006Q4

REPORT INFORMATION
  Report Type: 
  Country: None (occurrence: None)
  Receive Date: 20061219
  Receipt Date: 20061026
  Transmission Date: 20070319
  Serious: Yes (Other)
  Sender: FDA-Public Use
  Company Number: US-ELI_LILLY_AND_COMPANY-US200610004920

PATIENT
  Sex: Male

DRUGS (2)
  1. HUMULIN U [Suspect]
  2. HUMALOG [Suspect]

REACTIONS (1)
  - RENAL FAILURE [None]
